FAERS Safety Report 21341674 (Version 1)
Quarter: 2022Q3

REPORT INFORMATION
  Report Type: Report from Study
  Country: CZ (occurrence: CZ)
  Receive Date: 20220916
  Receipt Date: 20220916
  Transmission Date: 20221027
  Serious: Yes (Other)
  Sender: FDA-Public Use
  Company Number: CZ-AUROBINDO-AUR-APL-2022-036863

PATIENT
  Age: 19 Year
  Sex: Male

DRUGS (9)
  1. CLARITHROMYCIN [Suspect]
     Active Substance: CLARITHROMYCIN
     Indication: Mycobacterium abscessus infection
     Dosage: UNK
     Route: 042
     Dates: end: 2018
  2. CIPROFLOXACIN [Concomitant]
     Active Substance: CIPROFLOXACIN
     Indication: Mycobacterium abscessus infection
     Dosage: UNK
     Route: 042
     Dates: end: 2018
  3. AMIKACIN [Concomitant]
     Active Substance: AMIKACIN
     Indication: Mycobacterium abscessus infection
     Dosage: UNK
     Route: 042
     Dates: end: 2018
  4. AMIKACIN [Concomitant]
     Active Substance: AMIKACIN
     Indication: Immunomodulatory therapy
     Dosage: UNK
     Dates: end: 2018
  5. IMIPENEM [Concomitant]
     Active Substance: IMIPENEM
     Indication: Immunomodulatory therapy
     Dosage: UNK
     Route: 042
     Dates: end: 2018
  6. DOXYCYCLINE [Concomitant]
     Active Substance: DOXYCYCLINE
     Indication: Mycobacterium abscessus infection
     Dosage: UNK
     Route: 048
     Dates: end: 2018
  7. TIGECYCLINE [Concomitant]
     Active Substance: TIGECYCLINE
     Indication: Immunomodulatory therapy
     Dosage: UNK
     Route: 042
     Dates: end: 2018
  8. AZITHROMYCIN [Concomitant]
     Active Substance: AZITHROMYCIN
     Indication: Immunomodulatory therapy
     Dosage: UNK
     Route: 042
     Dates: end: 2018
  9. CLOFAZIMINE [Concomitant]
     Active Substance: CLOFAZIMINE
     Indication: Product used for unknown indication
     Dosage: UNK
     Route: 065
     Dates: start: 201512, end: 2018

REACTIONS (1)
  - Drug resistance [Unknown]
